FAERS Safety Report 6897807-8 (Version None)
Quarter: 2010Q3

REPORT INFORMATION
  Report Type: 
  Country: None (occurrence: None)
  Receive Date: 20100802
  Receipt Date: 20070807
  Transmission Date: 20110219
  Serious: No
  Sender: FDA-Public Use
  Company Number: US-PFIZER INC-2007037882

PATIENT
  Sex: Female
  Weight: 63.5 kg

DRUGS (6)
  1. LYRICA [Suspect]
     Indication: TRIGEMINAL NEURALGIA
     Dates: start: 20070429
  2. LYRICA [Suspect]
     Indication: POST HERPETIC NEURALGIA
  3. VITAMINS [Concomitant]
  4. AMINO ACIDS [Concomitant]
  5. FUMARIC ACID [Concomitant]
     Indication: ABDOMINAL DISCOMFORT
  6. ATIVAN [Concomitant]
     Dosage: 1 EVERY 3 DAYS

REACTIONS (10)
  - BREAKTHROUGH PAIN [None]
  - DRUG INEFFECTIVE [None]
  - EMOTIONAL DISORDER [None]
  - FATIGUE [None]
  - FEELING ABNORMAL [None]
  - HYPOKINESIA [None]
  - MOOD SWINGS [None]
  - PAIN [None]
  - SOMNOLENCE [None]
  - TINNITUS [None]
